FAERS Safety Report 18570954 (Version 4)
Quarter: 2022Q3

REPORT INFORMATION
  Report Type: Spontaneous
  Country: GB (occurrence: GB)
  Receive Date: 20201202
  Receipt Date: 20220719
  Transmission Date: 20221027
  Serious: Yes (Death, Hospitalization, Other)
  Sender: FDA-Public Use
  Company Number: GB-AMGEN-GBRSP2020192444

PATIENT

DRUGS (2)
  1. DARBEPOETIN ALFA [Suspect]
     Active Substance: DARBEPOETIN ALFA
     Indication: Anaemia
     Dosage: UNK
     Route: 065
  2. IRON [Concomitant]
     Active Substance: IRON
     Indication: Anaemia
     Dosage: UNK
     Route: 042

REACTIONS (49)
  - Death [Fatal]
  - Myocardial infarction [Fatal]
  - Cerebrovascular accident [Fatal]
  - End stage renal disease [Unknown]
  - Syncope [Unknown]
  - Urosepsis [Unknown]
  - Pulmonary hypertension [Unknown]
  - Azotaemia [Unknown]
  - Hyperkalaemia [Unknown]
  - Acute kidney injury [Unknown]
  - Pulmonary oedema [Unknown]
  - Angina unstable [Unknown]
  - Bradycardia [Unknown]
  - Cardiac failure [Unknown]
  - Cardiac failure acute [Unknown]
  - Cholecystitis acute [Unknown]
  - Clostridium difficile colitis [Unknown]
  - Device related infection [Unknown]
  - Osteomyelitis [Unknown]
  - Pyelonephritis acute [Unknown]
  - Transient ischaemic attack [Unknown]
  - Ischaemic stroke [Unknown]
  - Arteriovenous fistula thrombosis [Unknown]
  - Hypertensive crisis [Unknown]
  - Deep vein thrombosis [Unknown]
  - Cardiac failure congestive [Unknown]
  - Acute myocardial infarction [Unknown]
  - Cardiac arrest [Unknown]
  - Peritonitis [Unknown]
  - Pneumonia [Unknown]
  - Pulmonary embolism [Unknown]
  - Sepsis [Unknown]
  - Glomerular filtration rate decreased [Unknown]
  - Urinary tract infection bacterial [Unknown]
  - Gastroenteritis [Unknown]
  - Coronary artery disease [Unknown]
  - Influenza [Unknown]
  - Peripheral arterial occlusive disease [Unknown]
  - General physical health deterioration [Unknown]
  - Peripheral ischaemia [Unknown]
  - Therapy non-responder [Unknown]
  - Anaemia [Unknown]
  - Pleural effusion [Unknown]
  - Urinary tract infection [Unknown]
  - Dehydration [Unknown]
  - Oedema peripheral [Unknown]
  - Hypervolaemia [Unknown]
  - Hypotension [Unknown]
  - Hypertension [Unknown]
